FAERS Safety Report 8280537-8 (Version None)
Quarter: 2012Q2

REPORT INFORMATION
  Report Type: 
  Country: None (occurrence: None)
  Receive Date: 20120412
  Receipt Date: 20120106
  Transmission Date: 20120825
  Serious: No
  Sender: FDA-Public Use
  Company Number: US-ASTRAZENECA-2012SE01483

PATIENT
  Age: 49 Year
  Sex: Female

DRUGS (4)
  1. PRILOSEC OTC [Suspect]
     Route: 048
  2. NEXIUM [Suspect]
     Route: 048
  3. CRESTOR [Concomitant]
  4. RANITIDINE [Concomitant]

REACTIONS (4)
  - DRUG INEFFECTIVE [None]
  - DYSPEPSIA [None]
  - WRONG DRUG ADMINISTERED [None]
  - DRUG DOSE OMISSION [None]
